FAERS Safety Report 17272820 (Version 1)
Quarter: 2020Q1

REPORT INFORMATION
  Report Type: Spontaneous
  Country: US (occurrence: US)
  Receive Date: 20191223
  Receipt Date: 20191223
  Transmission Date: 20200409
  Serious: Yes (Hospitalization)
  Sender: FDA-Public Use
  Company Number: None

PATIENT
  Age: 42 Year
  Sex: Male
  Weight: 152 kg

DRUGS (1)
  1. DALBAVANCIN (DALBAVANCIN 500MG/VIL INJ) [Suspect]
     Active Substance: DALBAVANCIN
     Indication: INFECTION
     Dates: start: 20190819, end: 20190819

REACTIONS (1)
  - Rash [None]

NARRATIVE: CASE EVENT DATE: 20190822
